FAERS Safety Report 12975465 (Version 1)
Quarter: 2016Q4

REPORT INFORMATION
  Report Type: Spontaneous
  Country: US (occurrence: US)
  Receive Date: 20161122
  Receipt Date: 20161122
  Transmission Date: 20170207
  Serious: Yes (Life-Threatening, Hospitalization)
  Sender: FDA-Public Use
  Company Number: None

PATIENT
  Age: 68 Year
  Sex: Male
  Weight: 77.7 kg

DRUGS (2)
  1. ATORVASTATIN [Suspect]
     Active Substance: ATORVASTATIN
     Indication: CEREBROVASCULAR ACCIDENT PROPHYLAXIS
     Route: 048
     Dates: start: 20130701, end: 20160825
  2. ATORVASTATIN [Suspect]
     Active Substance: ATORVASTATIN
     Indication: HYPERLIPIDAEMIA
     Route: 048
     Dates: start: 20130701, end: 20160825

REACTIONS (9)
  - Hepatitis [None]
  - Drug-induced liver injury [None]
  - Nephritis [None]
  - Asthenia [None]
  - Dialysis [None]
  - Rhabdomyolysis [None]
  - Acute kidney injury [None]
  - Renal tubular necrosis [None]
  - Myopathy [None]

NARRATIVE: CASE EVENT DATE: 20160824
